FAERS Safety Report 15700411 (Version 3)
Quarter: 2020Q2

REPORT INFORMATION
  Report Type: Report from Study
  Country: CA (occurrence: CA)
  Receive Date: 20181207
  Receipt Date: 20200429
  Transmission Date: 20200713
  Serious: Yes (Hospitalization)
  Sender: FDA-Public Use
  Company Number: PHHY2018CA147963

PATIENT
  Age: 75 Year
  Sex: Female

DRUGS (9)
  1. CALCIUM [Concomitant]
     Active Substance: CALCIUM
     Indication: PRODUCT USED FOR UNKNOWN INDICATION
     Dosage: 50 MG, QD
     Route: 065
  2. VITAMIN D3 [Concomitant]
     Active Substance: CHOLECALCIFEROL
     Indication: PRODUCT USED FOR UNKNOWN INDICATION
     Dosage: 1 DF, IN MORNING
     Route: 065
  3. REVOLADE [Suspect]
     Active Substance: ELTROMBOPAG
     Indication: IMMUNE THROMBOCYTOPENIA
     Dosage: 50 MG, UNK
     Route: 048
     Dates: start: 20181020
  4. INFLUENZA [Concomitant]
     Active Substance: INFLUENZA VIRUS VACCINE
     Indication: PRODUCT USED FOR UNKNOWN INDICATION
     Dosage: UNK
     Route: 065
     Dates: start: 20181129
  5. REVOLADE [Suspect]
     Active Substance: ELTROMBOPAG
     Dosage: 25 MG, QD
     Route: 048
  6. VITAMIN D [Concomitant]
     Active Substance: VITAMIN D NOS
     Indication: PRODUCT USED FOR UNKNOWN INDICATION
     Dosage: AT THE END OF DAY
     Route: 065
  7. OMEGA 3 [Concomitant]
     Active Substance: OMEGA-3 FATTY ACIDS
     Indication: PRODUCT USED FOR UNKNOWN INDICATION
     Dosage: 1 DF, IN MORNING.
     Route: 065
  8. VITAMIN B CO [Concomitant]
     Indication: PRODUCT USED FOR UNKNOWN INDICATION
     Dosage: 1 DF, IN MORNING
     Route: 065
  9. VITAMIN B12 [Concomitant]
     Active Substance: CYANOCOBALAMIN
     Indication: PRODUCT USED FOR UNKNOWN INDICATION
     Dosage: 1 DF, IN MORNING
     Route: 065

REACTIONS (20)
  - Dizziness [Unknown]
  - Reticulocyte count increased [Unknown]
  - Faeces discoloured [Unknown]
  - Platelet count decreased [Recovering/Resolving]
  - Hepatic enzyme decreased [Unknown]
  - White blood cell count increased [Unknown]
  - Gastric haemorrhage [Unknown]
  - Haemoglobin decreased [Recovering/Resolving]
  - Gastritis [Unknown]
  - Monocyte count increased [Unknown]
  - Spleen disorder [Unknown]
  - Lymphocyte count decreased [Unknown]
  - Red blood cell nucleated morphology present [Unknown]
  - Abdominal discomfort [Recovered/Resolved]
  - Dyspnoea [Unknown]
  - Post procedural haemorrhage [Unknown]
  - Weight decreased [Unknown]
  - Red blood cell abnormality [Unknown]
  - Abdominal distension [Unknown]
  - Lymphocyte count increased [Unknown]

NARRATIVE: CASE EVENT DATE: 20200415
